FAERS Safety Report 10729083 (Version 1)
Quarter: 2015Q1

REPORT INFORMATION
  Report Type: Spontaneous
  Country: TW (occurrence: TW)
  Receive Date: 20150122
  Receipt Date: 20150122
  Transmission Date: 20150721
  Serious: Yes (Other)
  Sender: FDA-Public Use
  Company Number: TW-ROCHE-1523337

PATIENT
  Age: 63 Year
  Sex: Female

DRUGS (3)
  1. VERTEPORFIN [Concomitant]
     Active Substance: VERTEPORFIN
     Route: 065
  2. RANIBIZUMAB [Suspect]
     Active Substance: RANIBIZUMAB
     Indication: VISUAL ACUITY REDUCED
  3. RANIBIZUMAB [Suspect]
     Active Substance: RANIBIZUMAB
     Indication: CHOROIDAL HAEMANGIOMA
     Dosage: STRENGTH:0.5/0.05MG/ML
     Route: 050

REACTIONS (5)
  - Macular detachment [Unknown]
  - Drug ineffective [Unknown]
  - Product use issue [Unknown]
  - Subretinal fluid [Recovered/Resolved]
  - Choroidal haemangioma [Unknown]
